FAERS Safety Report 8320487-1 (Version None)
Quarter: 2012Q2

REPORT INFORMATION
  Report Type: 
  Country: None (occurrence: None)
  Receive Date: 20120427
  Receipt Date: 20120427
  Transmission Date: 20120825
  Serious: Yes (Other)
  Sender: FDA-Public Use
  Company Number: None

PATIENT
  Age: 29 Year
  Sex: Female
  Weight: 48.534 kg

DRUGS (2)
  1. BUPRENORPHINE HCL-SUBUTEX- [Concomitant]
     Dosage: 8MG
     Route: 060
  2. SUBOXONE [Suspect]
     Indication: DRUG DEPENDENCE
     Dosage: 8MG
     Route: 060
     Dates: start: 20081022, end: 20120426

REACTIONS (6)
  - DIZZINESS [None]
  - MALAISE [None]
  - DRUG WITHDRAWAL SYNDROME [None]
  - ANXIETY [None]
  - DRUG DOSE OMISSION [None]
  - HEADACHE [None]
